FAERS Safety Report 8948191 (Version 1)
Quarter: 2012Q4

REPORT INFORMATION
  Report Type: Spontaneous
  Country: US (occurrence: None)
  Receive Date: 20121126
  Receipt Date: 20121126
  Transmission Date: 20130627
  Serious: Yes (Hospitalization)
  Sender: FDA-Public Use
  Company Number: 2012-608

PATIENT
  Age: 41 Year
  Sex: Female

DRUGS (8)
  1. PRIALT [Suspect]
     Route: 037
     Dates: start: 2011, end: 2012
  2. PRIALT [Suspect]
     Route: 037
     Dates: start: 2012, end: 20121031
  3. PRIALT [Suspect]
     Route: 037
     Dates: start: 20121031, end: 20121102
  4. PRIALT [Suspect]
     Route: 037
     Dates: start: 20121102, end: 20121105
  5. PRIALT [Suspect]
     Route: 037
     Dates: start: 20121105
  6. MORPHINE SULFATE [Suspect]
     Route: 037
     Dates: start: 2011, end: 201204
  7. MORPHINE SULFATE [Suspect]
     Route: 037
     Dates: start: 201211
  8. ZOLOFT (SERTRALINE HYDROCHLORIDE) [Concomitant]

REACTIONS (5)
  - Serotonin syndrome [None]
  - Mental impairment [None]
  - Drug tolerance [None]
  - Hyperaesthesia [None]
  - Blood pressure increased [None]
